APPROVED DRUG PRODUCT: ABIRATERONE ACETATE
Active Ingredient: ABIRATERONE ACETATE
Strength: 500MG
Dosage Form/Route: TABLET;ORAL
Application: A208446 | Product #002 | TE Code: AB
Applicant: MYLAN PHARMACEUTICALS INC
Approved: Dec 14, 2020 | RLD: No | RS: No | Type: RX